FAERS Safety Report 4665124-2 (Version None)
Quarter: 2005Q2

REPORT INFORMATION
  Report Type: 
  Country: None (occurrence: None)
  Receive Date: 20050517
  Receipt Date: 20050310
  Transmission Date: 20051028
  Serious: No
  Sender: FDA-Public Use
  Company Number: S05-USA-01303-01

PATIENT
  Age: 87 Year
  Sex: Male

DRUGS (2)
  1. NAMENDA [Suspect]
     Indication: AMNESIA
     Dosage: 5 MG BID PO
     Route: 048
     Dates: start: 20050307
  2. NAMENDA [Suspect]
     Indication: AMNESIA
     Dosage: 5 MG QD PO
     Route: 048
     Dates: start: 20050228, end: 20050306

REACTIONS (3)
  - BALANCE DISORDER [None]
  - DIZZINESS [None]
  - HEADACHE [None]
